FAERS Safety Report 25250179 (Version 3)
Quarter: 2025Q2

REPORT INFORMATION
  Report Type: Spontaneous
  Country: CA (occurrence: CA)
  Receive Date: 20250429
  Receipt Date: 20250625
  Transmission Date: 20250716
  Serious: Yes (Other)
  Sender: PFIZER
  Company Number: CA-PFIZER INC-202500090085

PATIENT
  Age: 63 Year
  Sex: Female

DRUGS (10)
  1. SOMAVERT [Suspect]
     Active Substance: PEGVISOMANT
     Indication: Acromegaly
     Dosage: 20 MG, 1X/DAY,1ML SYRINGE27G SYRINGE
     Route: 058
     Dates: start: 20240327, end: 2024
  2. SOMAVERT [Suspect]
     Active Substance: PEGVISOMANT
     Route: 058
     Dates: start: 2024, end: 2024
  3. SOMAVERT [Suspect]
     Active Substance: PEGVISOMANT
     Dosage: 10 MG, 1X/DAY
     Route: 058
     Dates: start: 2024
  4. AMLODIPINE [Concomitant]
     Active Substance: AMLODIPINE BESYLATE
  5. IRBESARTAN [Concomitant]
     Active Substance: IRBESARTAN
  6. METFORMIN HYDROCHLORIDE [Concomitant]
     Active Substance: METFORMIN HYDROCHLORIDE
  7. OZEMPIC [Concomitant]
     Active Substance: SEMAGLUTIDE
  8. PREGABALIN [Concomitant]
     Active Substance: PREGABALIN
  9. SERTRALINE [Concomitant]
     Active Substance: SERTRALINE HYDROCHLORIDE
  10. CHOLECALCIFEROL [Concomitant]
     Active Substance: CHOLECALCIFEROL

REACTIONS (2)
  - Deafness [Unknown]
  - Injection site bruising [Unknown]
